FAERS Safety Report 4654022-6 (Version None)
Quarter: 2005Q2

REPORT INFORMATION
  Report Type: 
  Country: None (occurrence: None)
  Receive Date: 20050504
  Receipt Date: 20050425
  Transmission Date: 20051028
  Serious: Yes (Death)
  Sender: FDA-Public Use
  Company Number: US-2005-006224

PATIENT
  Age: 56 Year
  Sex: Female

DRUGS (1)
  1. BETASERON (INTERFERON BETA-1B) INJECITON, 250UG [Suspect]
     Indication: RELAPSING-REMITTING MULTIPLE SCLEROSIS
     Dosage: SUBCUTANEOUS
     Route: 058
     Dates: start: 19970909, end: 20050313

REACTIONS (1)
  - DEATH [None]
